FAERS Safety Report 26132753 (Version 2)
Quarter: 2025Q4

REPORT INFORMATION
  Report Type: Report from Study
  Country: US (occurrence: US)
  Receive Date: 20251208
  Receipt Date: 20251214
  Transmission Date: 20260119
  Serious: Yes (Hospitalization)
  Sender: ABBVIE
  Company Number: US-ABBVIE-6579436

PATIENT
  Age: 42 Year
  Sex: Female
  Weight: 53.523 kg

DRUGS (4)
  1. RINVOQ [Suspect]
     Active Substance: UPADACITINIB
     Indication: Colitis ulcerative
     Route: 048
     Dates: start: 20250404, end: 202506
  2. RINVOQ [Suspect]
     Active Substance: UPADACITINIB
     Indication: Colitis ulcerative
     Route: 048
     Dates: start: 202506
  3. LANSOPRAZOLE [Concomitant]
     Active Substance: LANSOPRAZOLE
     Indication: Gastrooesophageal reflux disease
  4. FISH OIL [Concomitant]
     Active Substance: FISH OIL
     Indication: Blood cholesterol

REACTIONS (20)
  - Ulcer [Not Recovered/Not Resolved]
  - Blood cholesterol increased [Not Recovered/Not Resolved]
  - Acne [Recovering/Resolving]
  - Faecaloma [Recovered/Resolved]
  - Skin mass [Recovered/Resolved]
  - Dyspepsia [Not Recovered/Not Resolved]
  - Hypotension [Not Recovered/Not Resolved]
  - Faecaloma [Recovering/Resolving]
  - White blood cell count abnormal [Recovered/Resolved]
  - Seborrhoea [Recovering/Resolving]
  - Constipation [Unknown]
  - Red cell distribution width increased [Not Recovered/Not Resolved]
  - Low density lipoprotein increased [Not Recovered/Not Resolved]
  - Red cell distribution width abnormal [Recovered/Resolved]
  - White blood cell count decreased [Recovering/Resolving]
  - Angina pectoris [Not Recovered/Not Resolved]
  - Productive cough [Not Recovered/Not Resolved]
  - Gastrooesophageal reflux disease [Not Recovered/Not Resolved]
  - Blood bilirubin increased [Not Recovered/Not Resolved]
  - Burning sensation [Not Recovered/Not Resolved]

NARRATIVE: CASE EVENT DATE: 20250101
